FAERS Safety Report 8962401 (Version 1)
Quarter: 2012Q4

REPORT INFORMATION
  Report Type: Spontaneous
  Country: US (occurrence: None)
  Receive Date: 20121211
  Receipt Date: 20121211
  Transmission Date: 20130627
  Serious: Yes (Life-Threatening, Hospitalization)
  Sender: FDA-Public Use
  Company Number: None

PATIENT

DRUGS (3)
  1. METFORMIN [Suspect]
     Indication: DIABETES MELLITUS
     Route: 048
     Dates: start: 20120112, end: 20120317
  2. LISINOPRIL [Suspect]
     Indication: HYPERTENSION
     Dates: start: 20110908, end: 20120317
  3. LISINOPRIL [Suspect]
     Indication: DIABETES MELLITUS
     Dates: start: 20110908, end: 20120317

REACTIONS (4)
  - Hyperkalaemia [None]
  - Haemodialysis [None]
  - Renal failure acute [None]
  - Acidosis [None]
